FAERS Safety Report 24096768 (Version 1)
Quarter: 2024Q3

REPORT INFORMATION
  Report Type: Spontaneous
  Country: US (occurrence: None)
  Receive Date: 20240715
  Receipt Date: 20240715
  Transmission Date: 20241016
  Serious: Yes (Hospitalization)
  Sender: Public
  Company Number: None

PATIENT
  Age: 25 Year
  Sex: Female
  Weight: 130.5 kg

DRUGS (5)
  1. HERBALS\MUSHROOMS UNSPECIFIED [Suspect]
     Active Substance: HERBALS\MUSHROOMS UNSPECIFIED
     Indication: Substance use
     Dosage: FREQUENCY : AS NEEDED  ORAL
     Route: 048
     Dates: start: 20240101, end: 20240213
  2. RISPERIDONE [Suspect]
     Active Substance: RISPERIDONE
  3. HYDROXYZINE [Concomitant]
     Active Substance: HYDROXYZINE HYDROCHLORIDE
  4. NEXPLANON [Concomitant]
     Active Substance: ETONOGESTREL
  5. .DELTA.9-TETRAHYDROCANNABINOL\HERBALS [Suspect]
     Active Substance: .DELTA.9-TETRAHYDROCANNABINOL\HERBALS

REACTIONS (15)
  - Dysphagia [None]
  - Oligodipsia [None]
  - Mania [None]
  - Cardiovascular symptom [None]
  - Hyperhidrosis [None]
  - Feeling hot [None]
  - Loss of consciousness [None]
  - Screaming [None]
  - Communication disorder [None]
  - Aggression [None]
  - Psychotic disorder [None]
  - Bipolar disorder [None]
  - Sensory loss [None]
  - Body temperature abnormal [None]
  - Personality change [None]

NARRATIVE: CASE EVENT DATE: 20240213
